FAERS Safety Report 5977477-3 (Version None)
Quarter: 2008Q4

REPORT INFORMATION
  Report Type: 
  Country: None (occurrence: None)
  Receive Date: 20081203
  Receipt Date: 20081126
  Transmission Date: 20090506
  Serious: Yes (Other)
  Sender: FDA-Public Use
  Company Number: JP-AVENTIS-200813665JP

PATIENT
  Age: 37 Year
  Sex: Male

DRUGS (1)
  1. CLEXANE [Suspect]
     Route: 058
     Dates: start: 20081122

REACTIONS (3)
  - LIVER FUNCTION TEST ABNORMAL [None]
  - LIVER INJURY [None]
  - PLATELET COUNT INCREASED [None]
